FAERS Safety Report 7245082-7 (Version None)
Quarter: 2011Q1

REPORT INFORMATION
  Report Type: 
  Country: None (occurrence: None)
  Receive Date: 20110126
  Receipt Date: 20110119
  Transmission Date: 20110831
  Serious: Yes (Other)
  Sender: FDA-Public Use
  Company Number: JP-PFIZER INC-2011013553

PATIENT

DRUGS (1)
  1. ZITHROMAC SR [Suspect]
     Indication: INFECTION
     Dosage: 2 G, 1X/DAY
     Route: 048
     Dates: start: 20110119, end: 20110119

REACTIONS (1)
  - FOREIGN BODY [None]
